FAERS Safety Report 4729952-7 (Version None)
Quarter: 2005Q3

REPORT INFORMATION
  Report Type: 
  Country: None (occurrence: None)
  Receive Date: 20050728
  Receipt Date: 20050720
  Transmission Date: 20060218
  Serious: Yes (Death, Hospitalization)
  Sender: FDA-Public Use
  Company Number: 2005-06-2348

PATIENT
  Age: 79 Year
  Sex: Male

DRUGS (5)
  1. FLUTAMIDE [Suspect]
     Indication: PROSTATE CANCER
     Dosage: 375 MG QD ORAL
     Route: 048
     Dates: start: 20050404, end: 20050622
  2. ENALAPRIL MALEATE [Concomitant]
  3. CANDESARTAN CILEXETIL [Concomitant]
  4. LEUPLIN [Concomitant]
  5. SENNOSIDES [Concomitant]

REACTIONS (7)
  - GASTROINTESTINAL CARCINOMA [None]
  - HEPATIC FAILURE [None]
  - HYDRONEPHROSIS [None]
  - LIVER DISORDER [None]
  - METASTASES TO BLADDER [None]
  - METASTASES TO LIVER [None]
  - METASTASES TO RECTUM [None]
